FAERS Safety Report 5144737-8 (Version None)
Quarter: 2006Q4

REPORT INFORMATION
  Report Type: 
  Country: None (occurrence: None)
  Receive Date: 20061107
  Receipt Date: 20061031
  Transmission Date: 20070319
  Serious: Yes (Life-Threatening, Hospitalization)
  Sender: FDA-Public Use
  Company Number: JP-JNJFOC-20061003376

PATIENT
  Sex: Female
  Weight: 51 kg

DRUGS (13)
  1. REMICADE [Suspect]
     Route: 042
  2. REMICADE [Suspect]
     Route: 042
  3. REMICADE [Suspect]
     Indication: RHEUMATOID ARTHRITIS
     Route: 042
  4. PREDNISOLONE [Concomitant]
     Route: 048
  5. PREDNISOLONE [Concomitant]
     Indication: RHEUMATOID ARTHRITIS
     Route: 048
  6. RHEUMATREX [Concomitant]
     Indication: RHEUMATOID ARTHRITIS
     Route: 048
  7. KLARICID [Concomitant]
     Indication: CHRONIC SINUSITIS
     Route: 048
  8. HYPEN [Concomitant]
     Route: 048
  9. HYPEN [Concomitant]
     Indication: RHEUMATOID ARTHRITIS
     Route: 048
  10. CYTOTEC [Concomitant]
     Route: 048
  11. CYTOTEC [Concomitant]
     Indication: RHEUMATOID ARTHRITIS
     Route: 048
  12. ALFAROL [Concomitant]
     Indication: OSTEOPOROSIS
     Route: 048
  13. FAMOTIDINE [Concomitant]
     Indication: ABDOMINAL PAIN UPPER
     Route: 048

REACTIONS (2)
  - BLOOD LACTATE DEHYDROGENASE INCREASED [None]
  - PNEUMOCYSTIS JIROVECI PNEUMONIA [None]
